FAERS Safety Report 19464306 (Version 2)
Quarter: 2021Q3

REPORT INFORMATION
  Report Type: Spontaneous
  Country: FR (occurrence: FR)
  Receive Date: 20210627
  Receipt Date: 20210811
  Transmission Date: 20211014
  Serious: Yes (Hospitalization)
  Sender: FDA-Public Use
  Company Number: NVSC2021FR098268

PATIENT
  Age: 61 Year
  Sex: Male

DRUGS (7)
  1. ATORVASTATIN [Suspect]
     Active Substance: ATORVASTATIN
     Indication: ACUTE CORONARY SYNDROME
     Dosage: 80 MG, QD
     Route: 048
     Dates: start: 20210309, end: 20210407
  2. LANSOPRAZOLE. [Concomitant]
     Active Substance: LANSOPRAZOLE
     Indication: PRODUCT USED FOR UNKNOWN INDICATION
     Dosage: 15 MG, QD
     Route: 048
     Dates: start: 20210309
  3. VISIPAQUE [Suspect]
     Active Substance: IODIXANOL
     Indication: ANGIOCARDIOGRAM
     Dosage: UNK, QD (SINGLE)
     Route: 051
     Dates: start: 20210309, end: 20210309
  4. VISIPAQUE [Suspect]
     Active Substance: IODIXANOL
     Dosage: UNK
     Route: 051
     Dates: start: 20210317, end: 20210317
  5. TICAGRELOR. [Concomitant]
     Active Substance: TICAGRELOR
     Indication: ACUTE CORONARY SYNDROME
     Dosage: 180 MG, QD
     Route: 048
     Dates: start: 20210309
  6. CARVEDILOL. [Concomitant]
     Active Substance: CARVEDILOL
     Indication: ACUTE CORONARY SYNDROME
     Dosage: 0.5 COMPRIM? MATIN ET SOIR
     Route: 048
     Dates: start: 20210309
  7. KARDEGIC [Concomitant]
     Active Substance: ASPIRIN DL-LYSINE
     Indication: ACUTE CORONARY SYNDROME
     Dosage: 1 DF, QD
     Route: 048
     Dates: start: 20210309

REACTIONS (3)
  - Hepatic cytolysis [Recovering/Resolving]
  - Rash [Recovered/Resolved]
  - Eosinophilia [Recovered/Resolved]

NARRATIVE: CASE EVENT DATE: 20210318
